FAERS Safety Report 23896201 (Version 2)
Quarter: 2024Q2

REPORT INFORMATION
  Report Type: Spontaneous
  Country: HR (occurrence: HR)
  Receive Date: 20240524
  Receipt Date: 20240531
  Transmission Date: 20240715
  Serious: Yes (Other)
  Sender: FDA-Public Use
  Company Number: HR-002147023-NVSC2024HR109222

PATIENT
  Age: 42 Year
  Sex: Female

DRUGS (3)
  1. CYCLOSPORINE [Suspect]
     Active Substance: CYCLOSPORINE
     Indication: Graft versus host disease
     Dosage: UNK (DAY +22 FROM PBSCT)
     Route: 065
  2. MYCOPHENOLATE MOFETIL [Concomitant]
     Active Substance: MYCOPHENOLATE MOFETIL
     Indication: Product used for unknown indication
     Dosage: UNK (DAY +22 FROM PBSCT) (DAY +30 FROM PBSCT)
     Route: 065
  3. CORTICOSTEROID NOS [Concomitant]
     Active Substance: CORTICOSTEROID NOS
     Indication: Product used for unknown indication
     Dosage: UNK (DAY +60 FROM PBSCT)
     Route: 065

REACTIONS (5)
  - Acute graft versus host disease [Unknown]
  - Pneumonia cytomegaloviral [Unknown]
  - Pancytopenia [Unknown]
  - Diarrhoea [Unknown]
  - Bacterial disease carrier [Unknown]
